FAERS Safety Report 4740355-1 (Version None)
Quarter: 2005Q3

REPORT INFORMATION
  Report Type: 
  Country: None (occurrence: None)
  Receive Date: 20050810
  Receipt Date: 20041210
  Transmission Date: 20060218
  Serious: No
  Sender: FDA-Public Use
  Company Number: US-GLAXOSMITHKLINE-A0560627A

PATIENT
  Sex: Female

DRUGS (4)
  1. PAXIL [Suspect]
     Route: 048
     Dates: start: 20020814
  2. TRAZODONE [Concomitant]
  3. SONATA [Concomitant]
  4. HYDROCODONE BITARTRATE + ACETAMINOPHEN [Concomitant]

REACTIONS (1)
  - ADVERSE EVENT [None]
